FAERS Safety Report 5743303-0 (Version None)
Quarter: 2008Q2

REPORT INFORMATION
  Report Type: 
  Country: None (occurrence: None)
  Receive Date: 20080519
  Receipt Date: 20080509
  Transmission Date: 20081010
  Serious: Yes (Hospitalization)
  Sender: FDA-Public Use
  Company Number: FR-PFIZER INC-2008025468

PATIENT
  Age: 72 Year
  Sex: Male

DRUGS (10)
  1. SALAZOPYRINE [Suspect]
     Dosage: DAILY DOSE:1.5GRAM
     Route: 048
     Dates: start: 20071112, end: 20071207
  2. NEXIUM [Concomitant]
     Route: 048
  3. MONO-TILDIEM [Concomitant]
     Route: 048
  4. ALDACTONE [Concomitant]
     Route: 048
  5. TAMSULOSIN HCL [Concomitant]
     Route: 048
  6. TAHOR [Concomitant]
     Route: 048
  7. CORTANCYL [Concomitant]
  8. KALEORID [Concomitant]
  9. DAFALGAN [Concomitant]
  10. DOMPERIDONE [Concomitant]

REACTIONS (1)
  - DRUG RASH WITH EOSINOPHILIA AND SYSTEMIC SYMPTOMS [None]
